FAERS Safety Report 13655187 (Version 2)
Quarter: 2017Q3

REPORT INFORMATION
  Report Type: Report from Study
  Country: US (occurrence: US)
  Receive Date: 20170615
  Receipt Date: 20170708
  Transmission Date: 20171127
  Serious: No
  Sender: FDA-Public Use
  Company Number: GXBR2017US001874

PATIENT
  Sex: Female
  Weight: 79 kg

DRUGS (1)
  1. GLATOPA [Suspect]
     Active Substance: GLATIRAMER ACETATE
     Indication: MULTIPLE SCLEROSIS
     Dosage: 20 MG, QD
     Route: 058

REACTIONS (5)
  - Flushing [Recovered/Resolved]
  - Pruritus [Recovered/Resolved]
  - Erythema [Not Recovered/Not Resolved]
  - Dyspnoea [Recovered/Resolved]
  - Injection site mass [Recovered/Resolved]
